FAERS Safety Report 7702950-7 (Version None)
Quarter: 2011Q3

REPORT INFORMATION
  Report Type: 
  Country: None (occurrence: None)
  Receive Date: 20110823
  Receipt Date: 20110819
  Transmission Date: 20111222
  Serious: Yes (Death)
  Sender: FDA-Public Use
  Company Number: PHHY2011FR74289

PATIENT
  Age: 84 Year
  Sex: Male
  Weight: 85 kg

DRUGS (1)
  1. RIVASTIGMINE [Suspect]
     Indication: DEMENTIA ALZHEIMER'S TYPE
     Dosage: 4.6 MG/ 24 HOURS
     Route: 062
     Dates: start: 20101009

REACTIONS (1)
  - DEATH [None]
